FAERS Safety Report 11276792 (Version 1)
Quarter: 2015Q3

REPORT INFORMATION
  Report Type: Spontaneous
  Country: BR (occurrence: BR)
  Receive Date: 20150716
  Receipt Date: 20150716
  Transmission Date: 20151125
  Serious: Yes (Other)
  Sender: FDA-Public Use
  Company Number: BR-PFIZER INC-2015234191

PATIENT
  Age: 57 Year
  Sex: Female
  Weight: 84 kg

DRUGS (5)
  1. XALATAN [Concomitant]
     Active Substance: LATANOPROST
     Indication: GLAUCOMA
     Dosage: UNK
     Dates: start: 2013
  2. TENADREN [Concomitant]
     Active Substance: HYDROCHLOROTHIAZIDE\PROPRANOLOL HYDROCHLORIDE
     Indication: HYPERTENSION
     Dosage: 1 DF, 1 TABLET A DAY
     Dates: start: 2010
  3. GEODON [Suspect]
     Active Substance: ZIPRASIDONE HYDROCHLORIDE\ZIPRASIDONE MESYLATE
     Dosage: 80 MG, 2X/DAY
     Route: 048
     Dates: start: 20150710
  4. ENALAPRIL [Concomitant]
     Active Substance: ENALAPRIL
     Indication: HYPERTENSION
     Dosage: 1 TABLET A DAY
     Dates: start: 2010
  5. GEODON [Suspect]
     Active Substance: ZIPRASIDONE HYDROCHLORIDE\ZIPRASIDONE MESYLATE
     Indication: PSYCHOTIC DISORDER
     Dosage: 80 MG, 1 TABLET A DAY
     Route: 048
     Dates: start: 201505, end: 201507

REACTIONS (2)
  - Drug ineffective [Unknown]
  - Hallucination, auditory [Unknown]
